FAERS Safety Report 24210778 (Version 2)
Quarter: 2024Q3

REPORT INFORMATION
  Report Type: Spontaneous
  Country: JP (occurrence: JP)
  Receive Date: 20240814
  Receipt Date: 20240826
  Transmission Date: 20241017
  Serious: No
  Sender: BAYER
  Company Number: JP-BAYER-2024A116374

PATIENT
  Age: 29 Year
  Sex: Female

DRUGS (1)
  1. YAZ [Suspect]
     Active Substance: DROSPIRENONE\ETHINYL ESTRADIOL
     Indication: Premenstrual syndrome
     Dosage: UNK
     Route: 048

REACTIONS (1)
  - Off label use [None]
